FAERS Safety Report 12137562 (Version 1)
Quarter: 2016Q1

REPORT INFORMATION
  Report Type: Spontaneous
  Country: FR (occurrence: FR)
  Receive Date: 20160302
  Receipt Date: 20160302
  Transmission Date: 20160526
  Serious: Yes (Hospitalization, Other)
  Sender: FDA-Public Use
  Company Number: FR-JNJFOC-20160224575

PATIENT
  Age: 33 Year
  Sex: Female
  Weight: 112 kg

DRUGS (2)
  1. XEPLION [Suspect]
     Active Substance: PALIPERIDONE PALMITATE
     Indication: SCHIZOPHRENIA
     Route: 030
     Dates: start: 201510, end: 20160203
  2. ABILIFY [Concomitant]
     Active Substance: ARIPIPRAZOLE
     Indication: PRODUCT USED FOR UNKNOWN INDICATION
     Dosage: EVENING
     Route: 065

REACTIONS (4)
  - Diabetic ketoacidosis [Unknown]
  - Weight increased [Unknown]
  - Hyperprolactinaemia [Unknown]
  - Hypogonadism [Unknown]

NARRATIVE: CASE EVENT DATE: 201602
